FAERS Safety Report 14214445 (Version 1)
Quarter: 2017Q4

REPORT INFORMATION
  Report Type: Spontaneous
  Country: US (occurrence: US)
  Receive Date: 20171122
  Receipt Date: 20171122
  Transmission Date: 20180321
  Serious: Yes (Other)
  Sender: FDA-Public Use
  Company Number: US-IPSEN BIOPHARMACEUTICALS, INC.-2017-12342

PATIENT
  Age: 69 Year
  Sex: Female

DRUGS (7)
  1. DYSPORT [Suspect]
     Active Substance: ABOBOTULINUMTOXINA
     Indication: SKIN WRINKLING
     Dosage: 4 UNITS
     Route: 058
     Dates: start: 20171013, end: 20171013
  2. DYSPORT [Suspect]
     Active Substance: ABOBOTULINUMTOXINA
     Indication: OFF LABEL USE
  3. AZELASTINE. [Concomitant]
     Active Substance: AZELASTINE HYDROCHLORIDE
  4. QVAIR [Concomitant]
  5. DYSPORT [Suspect]
     Active Substance: ABOBOTULINUMTOXINA
     Indication: SKIN WRINKLING
     Dosage: 80 UNITS
     Route: 058
     Dates: start: 20171006, end: 20171006
  6. DYSPORT [Suspect]
     Active Substance: ABOBOTULINUMTOXINA
     Indication: SKIN COSMETIC PROCEDURE
     Dosage: NOT REPORTED
     Route: 065
  7. DYSPORT [Suspect]
     Active Substance: ABOBOTULINUMTOXINA
     Indication: SKIN WRINKLING

REACTIONS (10)
  - Diplopia [Recovering/Resolving]
  - Nausea [Not Recovered/Not Resolved]
  - Dizziness [Not Recovered/Not Resolved]
  - Vision blurred [Recovering/Resolving]
  - Off label use [Unknown]
  - Vision blurred [Recovering/Resolving]
  - Intentional product misuse [Unknown]
  - Brow ptosis [Unknown]
  - Incorrect route of drug administration [Unknown]
  - Brow ptosis [Unknown]

NARRATIVE: CASE EVENT DATE: 20171006
